FAERS Safety Report 19841875 (Version 2)
Quarter: 2021Q4

REPORT INFORMATION
  Report Type: Report from Study
  Country: US (occurrence: US)
  Receive Date: 20210916
  Receipt Date: 20211221
  Transmission Date: 20220303
  Serious: No
  Sender: FDA-Public Use
  Company Number: US-IPSEN BIOPHARMACEUTICALS, INC.-2021-22194

PATIENT
  Sex: Female

DRUGS (1)
  1. SOMATULINE DEPOT [Suspect]
     Active Substance: LANREOTIDE ACETATE
     Indication: Neuroendocrine tumour
     Dosage: 120MG
     Route: 058
     Dates: start: 2019

REACTIONS (5)
  - Hypoaesthesia [Recovered/Resolved]
  - Injection site pain [Recovering/Resolving]
  - Dizziness [Recovering/Resolving]
  - Nausea [Recovering/Resolving]
  - Fatigue [Recovering/Resolving]
